FAERS Safety Report 7008126-3 (Version None)
Quarter: 2010Q3

REPORT INFORMATION
  Report Type: 
  Country: None (occurrence: None)
  Receive Date: 20100922
  Receipt Date: 20100915
  Transmission Date: 20110219
  Serious: Yes (Hospitalization)
  Sender: FDA-Public Use
  Company Number: US-US-EMD SERONO, INC.-230318J10USA

PATIENT
  Sex: Female

DRUGS (2)
  1. REBIF [Suspect]
     Indication: MULTIPLE SCLEROSIS
     Route: 058
     Dates: start: 20091016, end: 20100901
  2. IBUPROFEN [Concomitant]
     Indication: PREMEDICATION
     Route: 065

REACTIONS (8)
  - DYSPNOEA [None]
  - HEART RATE INCREASED [None]
  - HYPOAESTHESIA [None]
  - MULTIPLE SCLEROSIS RELAPSE [None]
  - MUSCULAR WEAKNESS [None]
  - PRODUCTIVE COUGH [None]
  - PYREXIA [None]
  - URINARY INCONTINENCE [None]
